FAERS Safety Report 21357354 (Version 1)
Quarter: 2022Q3

REPORT INFORMATION
  Report Type: Spontaneous
  Country: DE (occurrence: DE)
  Receive Date: 20220921
  Receipt Date: 20220921
  Transmission Date: 20221027
  Serious: Yes (Hospitalization, Other)
  Sender: FDA-Public Use
  Company Number: DE-ADRED-05751-01

PATIENT
  Age: 51 Year
  Sex: Male

DRUGS (1)
  1. CEFUROXIME [Suspect]
     Active Substance: CEFUROXIME
     Indication: Product used for unknown indication
     Dosage: 500 MILLIGRAM (500 MG, 1-0-1-0 )
     Route: 048

REACTIONS (5)
  - Epididymitis [Unknown]
  - Headache [Unknown]
  - Pyrexia [Unknown]
  - Rash [Unknown]
  - Testicular pain [Unknown]
